FAERS Safety Report 21760467 (Version 1)
Quarter: 2022Q4

REPORT INFORMATION
  Report Type: Spontaneous
  Country: US (occurrence: None)
  Receive Date: 20221220
  Receipt Date: 20221220
  Transmission Date: 20230113
  Serious: No
  Sender: FDA-Public Use
  Company Number: None

PATIENT
  Sex: Male

DRUGS (2)
  1. REMODULIN [Suspect]
     Active Substance: TREPROSTINIL
     Indication: Pulmonary arterial hypertension
  2. DEVICE [Suspect]
     Active Substance: DEVICE
     Indication: Pulmonary arterial hypertension
     Dosage: OTHER QUANTITY : 51 NG/KG/MIN;?OTHER FREQUENCY : CONTINOUS;?
     Route: 042
     Dates: start: 20210323

REACTIONS (3)
  - Dizziness [None]
  - Recalled product administered [None]
  - Infusion related reaction [None]
